FAERS Safety Report 14931706 (Version 1)
Quarter: 2018Q2

REPORT INFORMATION
  Report Type: Spontaneous
  Country: US (occurrence: US)
  Receive Date: 20180504
  Receipt Date: 20180504
  Transmission Date: 20180711
  Serious: Yes (Hospitalization)
  Sender: FDA-Public Use
  Company Number: None

PATIENT
  Age: 61 Year
  Sex: Female

DRUGS (1)
  1. CAPECITABINE TAB 150MG [Suspect]
     Active Substance: CAPECITABINE
     Indication: BREAST CANCER
     Dosage: 150MG 2Q 12H FOR 14 D; SQ?
     Route: 058
     Dates: start: 20180504

REACTIONS (3)
  - Infection [None]
  - Vertigo [None]
  - Pulmonary oedema [None]

NARRATIVE: CASE EVENT DATE: 20180328
